FAERS Safety Report 7309375-7 (Version None)
Quarter: 2011Q1

REPORT INFORMATION
  Report Type: 
  Country: None (occurrence: None)
  Receive Date: 20110211
  Receipt Date: 20110128
  Transmission Date: 20110831
  Serious: Yes (Other)
  Sender: FDA-Public Use
  Company Number: 2011000431

PATIENT
  Age: 60 Year
  Sex: Female
  Weight: 74.2 kg

DRUGS (3)
  1. GDC-0449 [Suspect]
     Indication: OVARIAN CANCER
     Dosage: 150 MG, QD, ORAL
     Route: 048
     Dates: start: 20110103, end: 20110117
  2. ERLOTINIB (ERLOTINIB) (TABLET) (ERLOTINIB) [Suspect]
     Indication: OVARIAN CANCER
     Dosage: 75 MG, QD, ORAL
     Route: 048
     Dates: start: 20110103, end: 20110117
  3. GEMCITABINE [Suspect]
     Indication: OVARIAN CANCER
     Dosage: 750 MG/M2, DAYS 1,8,15,22,29,36,43, INTRAVENOUS
     Route: 042
     Dates: start: 20110103, end: 20110110

REACTIONS (2)
  - THROMBOCYTOPENIA [None]
  - DERMATITIS ACNEIFORM [None]
